FAERS Safety Report 8074783-6 (Version None)
Quarter: 2012Q1

REPORT INFORMATION
  Report Type: 
  Country: None (occurrence: None)
  Receive Date: 20120126
  Receipt Date: 20120125
  Transmission Date: 20120608
  Serious: No
  Sender: FDA-Public Use
  Company Number: US-PFIZER INC-2012021236

PATIENT
  Sex: Male
  Weight: 109 kg

DRUGS (6)
  1. AMLODIPINE [Concomitant]
     Indication: HYPERTENSION
     Dosage: UNK
  2. BYSTOLIC [Concomitant]
     Indication: HYPERTENSION
     Dosage: 10 MG, UNK
  3. LISINOPRIL [Concomitant]
     Indication: HYPERTENSION
     Dosage: 20 MG, UNK
  4. TAMSULOSIN [Concomitant]
     Dosage: UNK
  5. CHANTIX [Suspect]
     Indication: SMOKING CESSATION THERAPY
     Dosage: 0.5 MG, 1X/DAY
     Route: 048
     Dates: start: 20081001
  6. CHANTIX [Suspect]
     Dosage: UNK
     Route: 048

REACTIONS (1)
  - ABNORMAL DREAMS [None]
